FAERS Safety Report 18654091 (Version 1)
Quarter: 2020Q4

REPORT INFORMATION
  Report Type: Spontaneous
  Country: US (occurrence: US)
  Receive Date: 20201223
  Receipt Date: 20201223
  Transmission Date: 20210114
  Serious: No
  Sender: FDA-Public Use
  Company Number: US-TAKEDA-2020TUS056984

PATIENT
  Sex: Female
  Weight: 75 kg

DRUGS (4)
  1. GATTEX [Suspect]
     Active Substance: TEDUGLUTIDE\WATER
     Indication: ILEOSTOMY
     Dosage: 0.37 MILLILITER,ONLY A COUPLE OF WEEKS
     Route: 058
     Dates: start: 20201124
  2. GATTEX [Suspect]
     Active Substance: TEDUGLUTIDE\WATER
     Indication: ILEOSTOMY
     Dosage: 0.37 MILLILITER,ONLY A COUPLE OF WEEKS
     Route: 058
     Dates: start: 20201124
  3. GATTEX [Suspect]
     Active Substance: TEDUGLUTIDE\WATER
     Indication: ILEOSTOMY
     Dosage: 0.37 MILLILITER,ONLY A COUPLE OF WEEKS
     Route: 058
     Dates: start: 20201124
  4. GATTEX [Suspect]
     Active Substance: TEDUGLUTIDE\WATER
     Indication: ILEOSTOMY
     Dosage: 0.37 MILLILITER,ONLY A COUPLE OF WEEKS
     Route: 058
     Dates: start: 20201124

REACTIONS (2)
  - Product use in unapproved indication [Unknown]
  - Adverse drug reaction [Unknown]
